FAERS Safety Report 12933366 (Version 1)
Quarter: 2016Q4

REPORT INFORMATION
  Report Type: Spontaneous
  Country: CA (occurrence: CA)
  Receive Date: 20161111
  Receipt Date: 20161111
  Transmission Date: 20170207
  Serious: Yes (Other)
  Sender: FDA-Public Use
  Company Number: CA-MYLANLABS-2016M1048622

PATIENT

DRUGS (1)
  1. DEXAMETHASONE. [Suspect]
     Active Substance: DEXAMETHASONE
     Indication: ANALGESIC THERAPY
     Route: 065

REACTIONS (4)
  - Product use issue [Unknown]
  - Wound infection staphylococcal [Unknown]
  - Incision site abscess [Unknown]
  - Post procedural infection [Unknown]
